FAERS Safety Report 7532986-0 (Version None)
Quarter: 2011Q2

REPORT INFORMATION
  Report Type: 
  Country: None (occurrence: None)
  Receive Date: 20110607
  Receipt Date: 20110607
  Transmission Date: 20111010
  Serious: No
  Sender: FDA-Public Use
  Company Number: None

PATIENT
  Age: 31 Year
  Sex: Male
  Weight: 90.7194 kg

DRUGS (1)
  1. SULFASALINE 500MG 500MG WATSON [Suspect]
     Dosage: 500MG 3TIMES A DAY PO
     Route: 048

REACTIONS (2)
  - SOMNOLENCE [None]
  - ASTHENIA [None]
